FAERS Safety Report 10203481 (Version 1)
Quarter: 2014Q2

REPORT INFORMATION
  Report Type: Report from Study
  Country: GB (occurrence: None)
  Receive Date: 20140523
  Receipt Date: 20140523
  Transmission Date: 20141212
  Serious: Yes (Life-Threatening)
  Sender: FDA-Public Use
  Company Number: FK201401878

PATIENT
  Age: 43 Year
  Sex: Female
  Weight: 61 kg

DRUGS (19)
  1. ONDANSETRON [Suspect]
     Indication: PRODUCT USED FOR UNKNOWN INDICATION
     Dates: start: 20140502
  2. AVEENO [Concomitant]
  3. BETAMETHASONE VALERATE [Concomitant]
  4. CYCLIZINE [Concomitant]
  5. DIAZEPAM [Concomitant]
  6. FENTANYL [Concomitant]
  7. GLYCERYL TRINITRATE [Concomitant]
  8. IBUPROFEN [Concomitant]
  9. LEVOTHYROXINE [Concomitant]
  10. OILATUM [Concomitant]
  11. NADOLOL [Concomitant]
  12. PARACETAMOL [Concomitant]
  13. SENNA (SENNA ALEXANDRINA) [Concomitant]
  14. SENOKOT (SENNA ALEXANDRINA) [Concomitant]
  15. TRIMETHOPRIM [Concomitant]
  16. SUNVIT-D3 (COMBEVIT C) [Concomitant]
  17. TRAMADOL [Concomitant]
  18. VANIQA (EFLORNITHINE) [Concomitant]
  19. ZOPICLONE (ZOPICLONE) [Concomitant]

REACTIONS (1)
  - Stevens-Johnson syndrome [None]
